FAERS Safety Report 10598230 (Version 1)
Quarter: 2014Q4

REPORT INFORMATION
  Report Type: Spontaneous
  Country: US (occurrence: US)
  Receive Date: 20141121
  Receipt Date: 20141121
  Transmission Date: 20150529
  Serious: No
  Sender: FDA-Public Use
  Company Number: US-ZOGENIX, INC.-2014ZX000247

PATIENT
  Sex: Male

DRUGS (3)
  1. ZOHYDRO [Suspect]
     Active Substance: HYDROCODONE BITARTRATE
     Indication: PAIN
     Route: 048
     Dates: start: 20140802, end: 20140822
  2. VICOPROFEN [Concomitant]
     Active Substance: HYDROCODONE BITARTRATE\IBUPROFEN
     Indication: BREAKTHROUGH PAIN
     Route: 048
  3. ZOHYDRO [Suspect]
     Active Substance: HYDROCODONE BITARTRATE
     Route: 048
     Dates: start: 20140822

REACTIONS (3)
  - Feeling abnormal [Unknown]
  - Therapeutic response decreased [Recovered/Resolved]
  - Inappropriate schedule of drug administration [Unknown]

NARRATIVE: CASE EVENT DATE: 20140802
